FAERS Safety Report 12912409 (Version 4)
Quarter: 2017Q1

REPORT INFORMATION
  Report Type: Spontaneous
  Country: AU (occurrence: AU)
  Receive Date: 20161104
  Receipt Date: 20170124
  Transmission Date: 20170428
  Serious: Yes (Other)
  Sender: FDA-Public Use
  Company Number: AU-SYMPLMED PHARMACEUTICALS-2016SYMPLMED000348

PATIENT

DRUGS (7)
  1. COVERAM [Suspect]
     Active Substance: AMLODIPINE\PERINDOPRIL
     Indication: PRODUCT USE ISSUE
  2. COVERSYL [Suspect]
     Active Substance: PERINDOPRIL
     Indication: HYPERTENSION
     Dosage: 10 MG, QD
     Route: 048
     Dates: start: 2000, end: 20161019
  3. COVERSYL [Suspect]
     Active Substance: PERINDOPRIL
     Dosage: 5 MG, QD AT NIGHT
     Route: 065
     Dates: start: 20161130
  4. COVERAM [Suspect]
     Active Substance: AMLODIPINE\PERINDOPRIL
     Indication: HYPERTENSION
     Dosage: 1 (10MG/5MG) TABLET, QD
     Route: 048
     Dates: start: 20161020, end: 20161025
  5. NUROFEN                            /00109201/ [Concomitant]
     Active Substance: IBUPROFEN
     Indication: ARTHRITIS
     Dosage: 200 MG, PRN
  6. COVERSYL [Suspect]
     Active Substance: PERINDOPRIL
     Dosage: 10 MG, QD IN THE MORNING
     Route: 048
     Dates: start: 20161026
  7. GLIMEL                             /00145301/ [Concomitant]
     Indication: DIABETES MELLITUS
     Dosage: 2.5 MG, QD
     Dates: start: 2002

REACTIONS (20)
  - Dry eye [Recovered/Resolved]
  - Thirst [Recovering/Resolving]
  - Blood glucose increased [Not Recovered/Not Resolved]
  - Dizziness [Not Recovered/Not Resolved]
  - Blood pressure increased [Not Recovered/Not Resolved]
  - Abasia [Recovering/Resolving]
  - Movement disorder [Recovering/Resolving]
  - Product use issue [Unknown]
  - Cough [Recovered/Resolved]
  - Tremor [Recovering/Resolving]
  - Overdose [Unknown]
  - Confusional state [Not Recovered/Not Resolved]
  - Pain [Recovered/Resolved]
  - Nausea [Recovered/Resolved]
  - Headache [Not Recovered/Not Resolved]
  - Cardiac flutter [Not Recovered/Not Resolved]
  - Eating disorder [Recovering/Resolving]
  - Vaginal haemorrhage [Recovered/Resolved]
  - Fatigue [Not Recovered/Not Resolved]
  - Abdominal pain upper [Recovered/Resolved]

NARRATIVE: CASE EVENT DATE: 20161018
